FAERS Safety Report 5464448-9 (Version None)
Quarter: 2007Q3

REPORT INFORMATION
  Report Type: 
  Country: None (occurrence: None)
  Receive Date: 20070921
  Receipt Date: 20070910
  Transmission Date: 20080115
  Serious: No
  Sender: FDA-Public Use
  Company Number: US-ELI_LILLY_AND_COMPANY-US200708004734

PATIENT
  Age: 65 Year
  Sex: Female
  Weight: 115.65 kg

DRUGS (10)
  1. LIPITOR [Concomitant]
     Dosage: 20 MG, UNK
  2. NORVASC [Concomitant]
     Dosage: 10 UNK, UNK
  3. COREG [Concomitant]
     Dosage: 6.25 UNK, 2/D
  4. COZAAR [Concomitant]
     Dosage: 50 UNK, DAILY (1/D)
  5. GLUCOTROL XL [Concomitant]
     Dosage: 2.5 UNK, DAILY (1/D)
  6. METFORMIN [Concomitant]
     Dosage: 1000 MG, 2/D
  7. NASACORT [Concomitant]
  8. CYMBALTA [Suspect]
     Indication: GENERALISED ANXIETY DISORDER
     Dosage: 60 MG, DAILY (1/D)
     Route: 048
     Dates: start: 20070507, end: 20070620
  9. CYMBALTA [Suspect]
     Dosage: 60 MG, 2/D
     Dates: start: 20070621, end: 20070811
  10. CYMBALTA [Suspect]
     Dosage: 30 MG, DAILY (1/D)
     Dates: start: 20070430, end: 20070506

REACTIONS (2)
  - ALANINE AMINOTRANSFERASE INCREASED [None]
  - ASPARTATE AMINOTRANSFERASE INCREASED [None]
